FAERS Safety Report 19804451 (Version 1)
Quarter: 2021Q3

REPORT INFORMATION
  Report Type: Spontaneous
  Country: US (occurrence: US)
  Receive Date: 20210908
  Receipt Date: 20210908
  Transmission Date: 20211014
  Serious: No
  Sender: FDA-Public Use
  Company Number: US-FARMAPROD-202106-0938

PATIENT
  Sex: Female
  Weight: 79.45 kg

DRUGS (10)
  1. PANTOPRAZOLE SODIUM. [Concomitant]
     Active Substance: PANTOPRAZOLE SODIUM
     Dosage: DELAYED RELEASE TABLET
  2. IRBESARTAN/HYDROCHLOROTHIAZIDE [Concomitant]
     Active Substance: HYDROCHLOROTHIAZIDE\IRBESARTAN
  3. PROBIOTIC?10 [Concomitant]
  4. MEPROBAMATE. [Concomitant]
     Active Substance: MEPROBAMATE
  5. CLONAZEPAM. [Concomitant]
     Active Substance: CLONAZEPAM
  6. ROSUVASTATIN CALCIUM. [Concomitant]
     Active Substance: ROSUVASTATIN CALCIUM
  7. OXERVATE [Suspect]
     Active Substance: CENEGERMIN-BKBJ
     Indication: NEUROTROPHIC KERATOPATHY
     Route: 047
     Dates: start: 20210512
  8. GABAPENTIN. [Concomitant]
     Active Substance: GABAPENTIN
  9. VITAMIN D3 [Concomitant]
     Active Substance: CHOLECALCIFEROL
  10. LEVOTHYROXINE. [Concomitant]
     Active Substance: LEVOTHYROXINE

REACTIONS (2)
  - Vertigo [Unknown]
  - Dizziness [Unknown]
